FAERS Safety Report 8119894-1 (Version None)
Quarter: 2012Q1

REPORT INFORMATION
  Report Type: 
  Country: None (occurrence: None)
  Receive Date: 20120207
  Receipt Date: 20120202
  Transmission Date: 20120608
  Serious: No
  Sender: FDA-Public Use
  Company Number: US-B.I. PHARMACEUTICALS,INC./RIDGEFIELD-2011-BP-27006BP

PATIENT
  Sex: Male

DRUGS (8)
  1. FLOMAX [Concomitant]
     Indication: BENIGN PROSTATIC HYPERPLASIA
     Route: 048
  2. CATAPRES-TTS-1 [Suspect]
     Indication: HYPERTENSION
  3. CATAPRES-TTS-1 [Suspect]
     Indication: BLOOD PRESSURE FLUCTUATION
     Dosage: 0.2 MG
     Route: 061
     Dates: start: 20110201
  4. CLONIDINE [Concomitant]
     Indication: BLOOD PRESSURE FLUCTUATION
     Route: 048
  5. METOPROLOL TARTRATE [Concomitant]
     Indication: TACHYCARDIA
     Dosage: 50 MG
     Route: 048
  6. ALLOPURINOL [Concomitant]
     Indication: NEPHROLITHIASIS
     Dosage: 100 MG
     Route: 048
  7. ASPIRIN [Concomitant]
     Indication: PROPHYLAXIS
     Dosage: 81 MG
     Route: 048
  8. SIMVASTATIN [Concomitant]
     Indication: BLOOD CHOLESTEROL INCREASED
     Dosage: 80 MG
     Route: 048

REACTIONS (9)
  - APPLICATION SITE VESICLES [None]
  - APPLICATION SITE EXFOLIATION [None]
  - CONDITION AGGRAVATED [None]
  - APPLICATION SITE ERYTHEMA [None]
  - APPLICATION SITE URTICARIA [None]
  - APPLICATION SITE PRURITUS [None]
  - APPLICATION SITE DISCOLOURATION [None]
  - SCAR [None]
  - DERMATITIS ALLERGIC [None]
